FAERS Safety Report 18163330 (Version 14)
Quarter: 2022Q2

REPORT INFORMATION
  Report Type: Spontaneous
  Country: US (occurrence: US)
  Receive Date: 20200818
  Receipt Date: 20220623
  Transmission Date: 20220721
  Serious: Yes (Life-Threatening, Hospitalization, Other)
  Sender: FDA-Public Use
  Company Number: US-PFIZER INC-2020315604

PATIENT
  Age: 50 Year
  Sex: Female
  Weight: 77.11 kg

DRUGS (16)
  1. PREMARIN [Suspect]
     Active Substance: ESTROGENS, CONJUGATED
     Indication: Blood oestrogen decreased
     Dosage: 0.625 MG/G THREE TIMES A WEEK
     Route: 067
     Dates: start: 201805
  2. PREMARIN [Suspect]
     Active Substance: ESTROGENS, CONJUGATED
     Indication: Hypertonic bladder
     Dosage: UNK
     Dates: start: 202005
  3. PREMARIN [Suspect]
     Active Substance: ESTROGENS, CONJUGATED
     Indication: Atrophic vulvovaginitis
     Dosage: UNK
  4. GABAPENTIN [Concomitant]
     Active Substance: GABAPENTIN
     Indication: Neuropathy peripheral
     Dosage: 600 MG, 2X/DAY (300MG TWO PILLS TWICE A DAY)
  5. GABAPENTIN [Concomitant]
     Active Substance: GABAPENTIN
     Indication: Fibromyalgia
  6. CYMBALTA [Concomitant]
     Active Substance: DULOXETINE HYDROCHLORIDE
     Indication: Fibromyalgia
     Dosage: 60 MG, 2X/DAY
  7. BUDESONIDE\FORMOTEROL FUMARATE [Concomitant]
     Active Substance: BUDESONIDE\FORMOTEROL FUMARATE
     Indication: Asthma
     Dosage: 2 DF, 2X/DAY  2 PUFFS WITH A SPACE BY MOUTH TWICE A DAY)
     Route: 048
  8. NAMENDA XR [Concomitant]
     Active Substance: MEMANTINE HYDROCHLORIDE
     Indication: Dementia
     Dosage: 21 MG, 1X/DAY
  9. LEVOTHYROXINE [Concomitant]
     Active Substance: LEVOTHYROXINE
     Indication: Hypothyroidism
     Dosage: 25 UG, 1X/DAY
  10. VERAPAMIL [Concomitant]
     Active Substance: VERAPAMIL HYDROCHLORIDE
     Indication: Sinus tachycardia
     Dosage: 120 MG, 2X/DAY
  11. FENOFIBRATE [Concomitant]
     Active Substance: FENOFIBRATE
     Indication: Blood cholesterol increased
     Dosage: 160 MG, 1X/DAY
  12. PANTOPRAZOLE [Concomitant]
     Active Substance: PANTOPRAZOLE
     Indication: Gastrooesophageal reflux disease
     Dosage: 40 MG, 1X/DAY
  13. TIZANIDINE [Concomitant]
     Active Substance: TIZANIDINE
     Indication: Myalgia
     Dosage: 4 MG, 3X/DAY
  14. ALLEGRA [Concomitant]
     Active Substance: FEXOFENADINE HYDROCHLORIDE
     Indication: Hypersensitivity
     Dosage: 360 MG, 1X/DAY (180MG TABLET TWO IN THE MORNING)
  15. ZYRTEC [Concomitant]
     Active Substance: CETIRIZINE HYDROCHLORIDE
     Indication: Hypersensitivity
     Dosage: 10 MG, 1X/DAY (ONE PILL AT NIGHT)
  16. TYLENOL WITH CODEINE [Concomitant]
     Active Substance: ACETAMINOPHEN\CODEINE PHOSPHATE
     Indication: Arthralgia
     Dosage: UP TO THREE TIMES A DAY

REACTIONS (10)
  - COVID-19 [Unknown]
  - COVID-19 pneumonia [Unknown]
  - Asthma [Unknown]
  - Off label use [Unknown]
  - Physical product label issue [Unknown]
  - Dyspnoea [Unknown]
  - Constipation [Recovered/Resolved]
  - Visual impairment [Unknown]
  - Bladder disorder [Unknown]
  - Feeling abnormal [Unknown]

NARRATIVE: CASE EVENT DATE: 20180501
